FAERS Safety Report 4576445-6 (Version None)
Quarter: 2005Q1

REPORT INFORMATION
  Report Type: 
  Country: None (occurrence: None)
  Receive Date: 20050207
  Receipt Date: 20050126
  Transmission Date: 20050727
  Serious: Yes (Hospitalization)
  Sender: FDA-Public Use
  Company Number: 2004095018

PATIENT
  Sex: Male
  Weight: 112 kg

DRUGS (1)
  1. NIFEDIPINE [Suspect]
     Indication: HYPERTENSIVE CRISIS
     Dosage: 20 MG (10 MG, WITHIN 5 MINUTES), SUBLINGUAL
     Route: 060

REACTIONS (2)
  - SINUS TACHYCARDIA [None]
  - VENTRICULAR HYPERTROPHY [None]
